FAERS Safety Report 5575212-4 (Version None)
Quarter: 2007Q4

REPORT INFORMATION
  Report Type: 
  Country: None (occurrence: None)
  Receive Date: 20071227
  Receipt Date: 20071217
  Transmission Date: 20080405
  Serious: Yes (Hospitalization, Other)
  Sender: FDA-Public Use
  Company Number: IE-PFIZER INC-2007096508

PATIENT
  Sex: Male
  Weight: 82 kg

DRUGS (2)
  1. LIPITOR [Suspect]
     Indication: BLOOD CHOLESTEROL INCREASED
     Route: 048
     Dates: start: 20030204, end: 20030630
  2. ACETAMINOPHEN [Concomitant]
     Route: 048

REACTIONS (2)
  - EPILEPSY [None]
  - GRAND MAL CONVULSION [None]
